FAERS Safety Report 10722807 (Version 1)
Quarter: 2015Q1

REPORT INFORMATION
  Report Type: Report from Study
  Country: MY (occurrence: MY)
  Receive Date: 20150120
  Receipt Date: 20150120
  Transmission Date: 20150721
  Serious: Yes (Death, Hospitalization, Other)
  Sender: FDA-Public Use
  Company Number: MY-ACTELION-A-CH2012-75231

PATIENT
  Age: 44 Year
  Sex: Female
  Weight: 57 kg

DRUGS (7)
  1. ILOPROST [Suspect]
     Active Substance: ILOPROST
     Indication: PULMONARY ARTERIAL HYPERTENSION
     Dosage: UNK
     Route: 055
     Dates: start: 201301, end: 201411
  2. MACITENTAN [Suspect]
     Active Substance: MACITENTAN
     Indication: PULMONARY ARTERIAL HYPERTENSION
     Dosage: 10 MG, QD
     Route: 048
     Dates: start: 20100112, end: 20141229
  3. SILDENAFIL. [Concomitant]
     Active Substance: SILDENAFIL
     Dosage: UNK
     Dates: start: 20040823
  4. ALDACTONE [Concomitant]
     Active Substance: SPIRONOLACTONE
     Dosage: UNK
     Dates: start: 20040728
  5. DIGOXIN. [Concomitant]
     Active Substance: DIGOXIN
     Dosage: UNK
     Dates: start: 20011207
  6. ILOPROST [Suspect]
     Active Substance: ILOPROST
     Dosage: UNK
     Route: 055
     Dates: start: 201001, end: 201006
  7. LASIX [Concomitant]
     Active Substance: FUROSEMIDE
     Dosage: UNK
     Dates: start: 20010625

REACTIONS (24)
  - Multi-organ failure [Fatal]
  - Cardiac arrest [Fatal]
  - Oedema peripheral [Fatal]
  - Lower respiratory tract infection [Unknown]
  - Pyrexia [Recovered/Resolved]
  - Condition aggravated [Fatal]
  - Lethargy [Fatal]
  - Diarrhoea [Fatal]
  - Right ventricular failure [Fatal]
  - Packed red blood cell transfusion [Unknown]
  - Hypotension [Fatal]
  - Cardiac murmur [Fatal]
  - Pulmonary arterial hypertension [Fatal]
  - Atrial fibrillation [Unknown]
  - Hepatomegaly [Fatal]
  - Venous pressure jugular increased [Fatal]
  - Respiratory tract infection [Recovered/Resolved]
  - Upper gastrointestinal haemorrhage [Unknown]
  - Cough [Recovered/Resolved]
  - Jaundice [Fatal]
  - Blood product transfusion [Unknown]
  - Dyspnoea [Fatal]
  - Tachypnoea [Fatal]
  - Abdominal distension [Fatal]

NARRATIVE: CASE EVENT DATE: 20121116
